FAERS Safety Report 21530938 (Version 2)
Quarter: 2022Q4

REPORT INFORMATION
  Report Type: Spontaneous
  Country: US (occurrence: US)
  Receive Date: 20221031
  Receipt Date: 20221102
  Transmission Date: 20230113
  Serious: Yes (Other)
  Sender: FDA-Public Use
  Company Number: US-ALLERGAN-2235535US

PATIENT
  Sex: Male

DRUGS (1)
  1. REFRESH TEARS [Suspect]
     Active Substance: CARBOXYMETHYLCELLULOSE SODIUM
     Indication: Dry eye

REACTIONS (1)
  - Cataract operation [Unknown]
